FAERS Safety Report 24539858 (Version 1)
Quarter: 2024Q4

REPORT INFORMATION
  Report Type: Spontaneous
  Country: AT (occurrence: AT)
  Receive Date: 20241023
  Receipt Date: 20241023
  Transmission Date: 20250115
  Serious: No
  Sender: BLUEPRINT MEDICINES
  Company Number: AT-Blueprint Medicines Corporation-SP-AT-2024-002128

PATIENT

DRUGS (1)
  1. AVAPRITINIB [Suspect]
     Active Substance: AVAPRITINIB
     Indication: Acute myeloid leukaemia
     Route: 065

REACTIONS (1)
  - Off label use [Unknown]
